FAERS Safety Report 24575983 (Version 1)
Quarter: 2024Q4

REPORT INFORMATION
  Report Type: Spontaneous
  Country: US (occurrence: None)
  Receive Date: 20241101
  Receipt Date: 20241101
  Transmission Date: 20250115
  Serious: Yes (Other)
  Sender: Public
  Company Number: None

PATIENT
  Age: 38 Year
  Sex: Female
  Weight: 52.2 kg

DRUGS (1)
  1. VIMIZIM [Suspect]
     Active Substance: ELOSULFASE ALFA
     Indication: Mucopolysaccharidosis IV
     Dosage: 105 MG WEEKLY INTRAVENOUS ?
     Route: 042
     Dates: start: 20240701

REACTIONS (3)
  - Ear pruritus [None]
  - Infusion site swelling [None]
  - Infusion related reaction [None]

NARRATIVE: CASE EVENT DATE: 20241031
